FAERS Safety Report 4666577-6 (Version None)
Quarter: 2005Q2

REPORT INFORMATION
  Report Type: 
  Country: None (occurrence: None)
  Receive Date: 20050519
  Receipt Date: 20040423
  Transmission Date: 20051028
  Serious: Yes (Hospitalization, Other)
  Sender: FDA-Public Use
  Company Number: PHBS2004BE05786

PATIENT
  Age: 63 Year
  Sex: Female

DRUGS (10)
  1. AREDIA [Suspect]
     Indication: METASTASES TO BONE
     Dosage: 90 MG, QMO
     Route: 042
     Dates: start: 19990218, end: 20021101
  2. PROVERA [Concomitant]
     Route: 065
     Dates: end: 20010101
  3. TAXOTERE [Concomitant]
     Route: 065
     Dates: start: 20010101, end: 20010301
  4. DEXAMETHASONE [Concomitant]
     Dosage: 8 MG, BID
     Route: 065
  5. TAXOL [Concomitant]
     Dosage: UNK, QW
     Route: 065
     Dates: start: 20010301, end: 20021129
  6. ORIMETEN [Concomitant]
     Route: 065
     Dates: start: 19990101, end: 19990801
  7. NAVELBINE [Concomitant]
     Dosage: UNK, UNK
     Route: 065
     Dates: start: 20021220, end: 20030530
  8. CORTICOSTEROIDS [Concomitant]
     Route: 065
  9. AROMASIN [Concomitant]
     Dosage: UNK, UNK
     Route: 065
     Dates: start: 20030601, end: 20040301
  10. ZOMETA [Suspect]
     Indication: METASTASES TO BONE
     Dosage: 4 MG, QMO
     Route: 042
     Dates: start: 20021201, end: 20040423

REACTIONS (8)
  - BONE DISORDER [None]
  - CELLULITIS [None]
  - MALIGNANT NEOPLASM PROGRESSION [None]
  - METASTASES TO LIVER [None]
  - OSTEONECROSIS [None]
  - PAIN IN JAW [None]
  - PRIMARY SEQUESTRUM [None]
  - WOUND DRAINAGE [None]
